FAERS Safety Report 15976321 (Version 5)
Quarter: 2019Q2

REPORT INFORMATION
  Report Type: Spontaneous
  Country: US (occurrence: US)
  Receive Date: 20190218
  Receipt Date: 20190604
  Transmission Date: 20190711
  Serious: Yes (Other)
  Sender: FDA-Public Use
  Company Number: US-PFIZER INC-2019066443

PATIENT
  Sex: Female

DRUGS (2)
  1. SODIUM BICARBONATE. [Suspect]
     Active Substance: SODIUM BICARBONATE
     Indication: LOCAL ANAESTHESIA
     Dosage: UNK
     Dates: start: 20190315, end: 20190315
  2. EPINEPHRINE/LIDOCAINE HYDROCHLORIDE [Suspect]
     Active Substance: EPINEPHRINE\LIDOCAINE HYDROCHLORIDE
     Indication: LOCAL ANAESTHESIA
     Dosage: UNK
     Route: 030
     Dates: start: 20190315, end: 20190315

REACTIONS (2)
  - Injection site hypoaesthesia [Unknown]
  - Injection site erythema [Unknown]

NARRATIVE: CASE EVENT DATE: 201903
